FAERS Safety Report 4284518-0 (Version None)
Quarter: 2004Q1

REPORT INFORMATION
  Report Type: 
  Country: None (occurrence: None)
  Receive Date: 20040130
  Receipt Date: 20040109
  Transmission Date: 20041129
  Serious: Yes (Other)
  Sender: FDA-Public Use
  Company Number: USA040156245

PATIENT
  Age: 83 Year
  Sex: Female

DRUGS (9)
  1. EVISTA [Suspect]
     Indication: OSTEOPENIA
     Dates: start: 20031112
  2. EVISTA [Suspect]
     Indication: OSTEOPOROSIS
     Dates: start: 20031112
  3. ATENOLOL [Concomitant]
  4. ZYRTEC [Concomitant]
  5. TYLENOL EXTENDED RELIEF (PARACETAMOL) [Concomitant]
  6. VITAMIN C [Concomitant]
  7. CALCIUM [Concomitant]
  8. VITAMIN D [Concomitant]
  9. PEPCID AC [Concomitant]

REACTIONS (2)
  - DRUG INEFFECTIVE [None]
  - SPINAL COMPRESSION FRACTURE [None]
